FAERS Safety Report 7236820-8 (Version None)
Quarter: 2011Q1

REPORT INFORMATION
  Report Type: 
  Country: None (occurrence: None)
  Receive Date: 20110120
  Receipt Date: 20110114
  Transmission Date: 20110831
  Serious: Yes (Other)
  Sender: FDA-Public Use
  Company Number: FR-GILEAD-2010-0032191

PATIENT
  Sex: Female
  Weight: 80 kg

DRUGS (6)
  1. HEPSERA [Suspect]
     Indication: HEPATITIS B
     Dates: end: 20100610
  2. PREVISCAN [Concomitant]
     Indication: ARRHYTHMIA
     Route: 048
  3. COVERSYL [Concomitant]
     Route: 048
  4. HEPSERA [Suspect]
     Dates: start: 20100709
  5. FRACTAL [Concomitant]
     Route: 048
  6. VIREAD [Suspect]
     Indication: HEPATITIS B
     Dates: start: 20100610, end: 20100709

REACTIONS (6)
  - HEADACHE [None]
  - OCULAR DISCOMFORT [None]
  - PAIN [None]
  - APHASIA [None]
  - APATHY [None]
  - DYSPEPSIA [None]
